FAERS Safety Report 24455334 (Version 2)
Quarter: 2024Q4

REPORT INFORMATION
  Report Type: Spontaneous
  Country: IT (occurrence: IT)
  Receive Date: 20241017
  Receipt Date: 20241018
  Transmission Date: 20250114
  Serious: No
  Sender: ROCHE
  Company Number: IT-ROCHE-3480766

PATIENT
  Age: 61 Year
  Sex: Male

DRUGS (7)
  1. MABTHERA [Suspect]
     Active Substance: RITUXIMAB
     Indication: Diffuse large B-cell lymphoma
     Dosage: R-DHAOX
     Route: 065
     Dates: start: 20230811, end: 20230904
  2. MABTHERA [Suspect]
     Active Substance: RITUXIMAB
     Dosage: POLA-BR BRIDGE TO CART
     Route: 065
     Dates: start: 20230911, end: 20231011
  3. POLATUZUMAB VEDOTIN [Suspect]
     Active Substance: POLATUZUMAB VEDOTIN
     Indication: Diffuse large B-cell lymphoma
     Dosage: POLA-BR BRIDGE TO CART
     Route: 065
     Dates: start: 20230911, end: 20231011
  4. DEXAMETHASONE [Suspect]
     Active Substance: DEXAMETHASONE
     Indication: Diffuse large B-cell lymphoma
     Dosage: R-DHAOX
     Route: 065
     Dates: start: 20230811, end: 20230904
  5. CYTARABINE [Suspect]
     Active Substance: CYTARABINE
     Indication: Diffuse large B-cell lymphoma
     Dosage: R-DHAOX
     Route: 065
     Dates: start: 20230811, end: 20230904
  6. OXALIPLATIN [Suspect]
     Active Substance: OXALIPLATIN
     Indication: Diffuse large B-cell lymphoma
     Dosage: R-DHAOX
     Route: 065
     Dates: start: 20230811, end: 20230904
  7. BENDAMUSTINE [Suspect]
     Active Substance: BENDAMUSTINE
     Indication: Diffuse large B-cell lymphoma
     Dosage: POLA-BR BRIDGE TO CART
     Route: 065
     Dates: start: 20230911, end: 20231011

REACTIONS (8)
  - Disease progression [Unknown]
  - Gamma-glutamyltransferase increased [Unknown]
  - Blood lactate dehydrogenase increased [Unknown]
  - Monocyte count increased [Unknown]
  - Lymphocyte count decreased [Unknown]
  - Platelet count decreased [Unknown]
  - Red blood cell count decreased [Unknown]
  - Haematocrit decreased [Unknown]

NARRATIVE: CASE EVENT DATE: 20231211
